FAERS Safety Report 23478057 (Version 1)
Quarter: 2024Q1

REPORT INFORMATION
  Report Type: Report from Study
  Country: CA (occurrence: CA)
  Receive Date: 20240204
  Receipt Date: 20240204
  Transmission Date: 20240410
  Serious: Yes (Other)
  Sender: FDA-Public Use
  Company Number: CA-ABBVIE-5623798

PATIENT
  Age: 67 Year
  Sex: Female

DRUGS (1)
  1. LINACLOTIDE [Suspect]
     Active Substance: LINACLOTIDE
     Indication: Constipation
     Dosage: 290MCG CAP
     Route: 048

REACTIONS (2)
  - Knee operation [Recovered/Resolved]
  - Knee operation [Recovering/Resolving]

NARRATIVE: CASE EVENT DATE: 20210101
